FAERS Safety Report 10495544 (Version 4)
Quarter: 2015Q3

REPORT INFORMATION
  Report Type: Spontaneous
  Country: JP (occurrence: JP)
  Receive Date: 20141003
  Receipt Date: 20150820
  Transmission Date: 20151125
  Serious: Yes (Hospitalization, Other)
  Sender: FDA-Public Use
  Company Number: JP-AMGEN-JPNOT2014076213

PATIENT
  Age: 81 Year
  Sex: Male
  Weight: 60 kg

DRUGS (16)
  1. PROSEXOL [Concomitant]
     Active Substance: ETHINYL ESTRADIOL
     Dosage: 0.5 MG, TID
     Route: 048
     Dates: start: 20130410
  2. MOHRUS [Concomitant]
     Active Substance: KETOPROFEN
     Dosage: UNK
     Route: 050
     Dates: start: 20121025
  3. VESICARE [Concomitant]
     Active Substance: SOLIFENACIN SUCCINATE
     Dosage: 2.5 MG, QD
     Route: 048
     Dates: start: 20091126
  4. CALCIUM LACTATE [Concomitant]
     Active Substance: CALCIUM LACTATE
     Dosage: 0.66 G, TID
     Route: 048
     Dates: start: 20120830
  5. EDIROL [Concomitant]
     Active Substance: ELDECALCITOL
     Dosage: 0.75 MUG, QD
     Route: 048
     Dates: start: 20120830
  6. HARNAL [Concomitant]
     Active Substance: TAMSULOSIN HYDROCHLORIDE
     Dosage: 0.2 MG, QD
     Route: 048
     Dates: start: 20090820
  7. DEPAS [Concomitant]
     Active Substance: ETIZOLAM
     Dosage: 0.5 MG, QD
     Route: 048
     Dates: start: 20121122
  8. TRAVELMIN                          /00517301/ [Concomitant]
     Dosage: 1 DF, QD
     Route: 048
     Dates: start: 20121122
  9. ZOLADEX LA [Concomitant]
     Active Substance: GOSERELIN ACETATE
     Dosage: 10.8 MG, UNK
     Route: 058
     Dates: start: 20090903
  10. RANMARK [Suspect]
     Active Substance: DENOSUMAB
     Indication: METASTASES TO BONE
     Dosage: 120 MG, UNK
     Route: 058
     Dates: start: 20120830, end: 20130821
  11. LOXONIN [Concomitant]
     Active Substance: LOXOPROFEN SODIUM
     Dosage: 60 MG, BID
     Route: 048
     Dates: start: 20090820
  12. VITAMINS NOS [Concomitant]
     Active Substance: VITAMINS
     Dosage: 5 MG, TID
     Route: 048
     Dates: start: 20091126
  13. GOSHAJINKIGAN [Concomitant]
     Active Substance: HERBALS
     Dosage: 2.5 G, TID
     Route: 048
     Dates: start: 20121025
  14. DUROTEP [Concomitant]
     Active Substance: FENTANYL
     Dosage: 8.4 MG, 1/3TIME /DAY
     Route: 050
     Dates: start: 20111116
  15. PURSENNID                          /00142207/ [Concomitant]
     Active Substance: SENNOSIDES A AND B
     Dosage: 12 MG, QD
     Route: 048
     Dates: start: 20110427
  16. MAGMITT [Concomitant]
     Active Substance: MAGNESIUM OXIDE
     Dosage: 330 MG, TID
     Route: 048
     Dates: start: 20091224

REACTIONS (2)
  - Osteonecrosis of jaw [Not Recovered/Not Resolved]
  - Hypercalcaemia [Recovered/Resolved]

NARRATIVE: CASE EVENT DATE: 20130703
